FAERS Safety Report 12520755 (Version 3)
Quarter: 2016Q3

REPORT INFORMATION
  Report Type: Spontaneous
  Country: GB (occurrence: GB)
  Receive Date: 20160701
  Receipt Date: 20160908
  Transmission Date: 20161109
  Serious: Yes (Other)
  Sender: FDA-Public Use
  Company Number: GB-BAYER-2016-128736

PATIENT
  Sex: Male

DRUGS (2)
  1. XOFIGO [Suspect]
     Active Substance: RADIUM RA-223 DICHLORIDE
     Indication: PROSTATE CANCER STAGE IV
     Dosage: DOSE: 5000 KBQ (CYCLE 1)
     Dates: start: 20160426, end: 20160426
  2. XOFIGO [Suspect]
     Active Substance: RADIUM RA-223 DICHLORIDE
     Indication: METASTASES TO BONE
     Dosage: DOSE: 4680 KBQ (CYCLE 2)
     Dates: start: 20160524, end: 20160524

REACTIONS (2)
  - Spinal cord compression [None]
  - Disease progression [None]
